FAERS Safety Report 15135571 (Version 1)
Quarter: 2018Q3

REPORT INFORMATION
  Report Type: Report from Study
  Country: JP (occurrence: JP)
  Receive Date: 20180712
  Receipt Date: 20180712
  Transmission Date: 20181010
  Serious: Yes (Other)
  Sender: FDA-Public Use
  Company Number: JP-TAIHO ONCOLOGY INC-JPTT180537

PATIENT
  Age: 47 Year
  Sex: Female
  Weight: 58 kg

DRUGS (3)
  1. LIMAS [Concomitant]
     Active Substance: LITHIUM CARBONATE
     Indication: DEPRESSION
     Route: 048
     Dates: end: 20180628
  2. LONSURF [Suspect]
     Active Substance: TIPIRACIL HYDROCHLORIDE\TRIFLURIDINE
     Indication: RECTAL CANCER
     Dosage: 55 MG X 2/DAY, ON DAYS 1?5 AND 8?12 OF EACH 28?DAY CYCLE
     Route: 048
     Dates: start: 20180606, end: 20180628
  3. AVASTIN [Concomitant]
     Active Substance: BEVACIZUMAB
     Indication: RECTAL CANCER
     Route: 041
     Dates: start: 20180606, end: 20180628

REACTIONS (3)
  - Hypokalaemia [Unknown]
  - Diarrhoea [Unknown]
  - Altered state of consciousness [Unknown]

NARRATIVE: CASE EVENT DATE: 20180628
